FAERS Safety Report 21148377 (Version 6)
Quarter: 2022Q4

REPORT INFORMATION
  Report Type: Spontaneous
  Country: US (occurrence: US)
  Receive Date: 20220729
  Receipt Date: 20221207
  Transmission Date: 20230112
  Serious: Yes (Other)
  Sender: FDA-Public Use
  Company Number: US-CELGENE-USA-20220100759

PATIENT
  Age: 86 Year
  Sex: Female
  Weight: 83.4 kg

DRUGS (10)
  1. REVLIMID [Suspect]
     Active Substance: LENALIDOMIDE
     Indication: Plasma cell myeloma
     Dosage: 25 MILLIGRAM
     Route: 048
     Dates: start: 201702
  2. REVLIMID [Suspect]
     Active Substance: LENALIDOMIDE
     Dosage: 10 MILLIGRAM
     Route: 048
     Dates: start: 201709
  3. REVLIMID [Suspect]
     Active Substance: LENALIDOMIDE
     Dosage: 5 MILLIGRAM
     Route: 048
     Dates: start: 201710
  4. REVLIMID [Suspect]
     Active Substance: LENALIDOMIDE
     Dosage: 15 MILLIGRAM
     Route: 048
     Dates: start: 20190618
  5. REVLIMID [Suspect]
     Active Substance: LENALIDOMIDE
     Route: 048
     Dates: start: 202101
  6. REVLIMID [Suspect]
     Active Substance: LENALIDOMIDE
     Route: 048
     Dates: start: 202109
  7. REVLIMID [Suspect]
     Active Substance: LENALIDOMIDE
     Dosage: 1 CAPSULE EVERY OTHER DAY FOR 21 DAYS OF A 28 DAY CYCLE
     Route: 048
     Dates: start: 20210928
  8. REVLIMID [Suspect]
     Active Substance: LENALIDOMIDE
     Dosage: 1 CAPSULE EVERY OTHER DAY FOR 21 DAYS OF A 28 DAY CYCLE
     Route: 048
     Dates: start: 20190618
  9. REVLIMID [Suspect]
     Active Substance: LENALIDOMIDE
     Dosage: EVERY OTHER DAY D1-21 EVERY 28 DAYS
     Route: 048
     Dates: start: 20210101
  10. REVLIMID [Suspect]
     Active Substance: LENALIDOMIDE
     Dosage: 1 CAPSULE EVERY OTHER DAY FOR 21 DAYS OF A 28 DAY CYCLE
     Route: 048
     Dates: start: 20190618

REACTIONS (14)
  - Product dose omission issue [Unknown]
  - Malaise [Unknown]
  - Pneumonia [Recovered/Resolved]
  - White blood cell count decreased [Unknown]
  - Upper respiratory tract infection [Unknown]
  - Laboratory test abnormal [Unknown]
  - Nasopharyngitis [Recovering/Resolving]
  - Diarrhoea [Recovered/Resolved]
  - Influenza [Unknown]
  - Muscle spasms [Unknown]
  - Off label use [Unknown]
  - Nausea [Unknown]
  - White blood cell count increased [Recovering/Resolving]
  - Monoclonal immunoglobulin increased [Recovering/Resolving]

NARRATIVE: CASE EVENT DATE: 20211101
